FAERS Safety Report 18304489 (Version 1)
Quarter: 2020Q3

REPORT INFORMATION
  Report Type: Spontaneous
  Country: US (occurrence: US)
  Receive Date: 20200923
  Receipt Date: 20200923
  Transmission Date: 20201103
  Serious: No
  Sender: FDA-Public Use
  Company Number: US-PFIZER INC-2020364138

PATIENT
  Age: 61 Year
  Sex: Female

DRUGS (2)
  1. OXYBUTININ [Suspect]
     Active Substance: OXYBUTYNIN
     Dosage: UNK
  2. XELJANZ XR [Suspect]
     Active Substance: TOFACITINIB CITRATE
     Dosage: UNK
     Dates: start: 20200717

REACTIONS (2)
  - Dry eye [Unknown]
  - Dry mouth [Unknown]
